FAERS Safety Report 14789379 (Version 4)
Quarter: 2018Q2

REPORT INFORMATION
  Report Type: Spontaneous
  Country: FR (occurrence: FR)
  Receive Date: 20180423
  Receipt Date: 20180504
  Transmission Date: 20180711
  Serious: Yes (Life-Threatening)
  Sender: FDA-Public Use
  Company Number: FR-ALVOGEN-2018-ALVOGEN-095763

PATIENT
  Age: 77 Year
  Sex: Male

DRUGS (18)
  1. STILNOX [Concomitant]
     Active Substance: ZOLPIDEM TARTRATE
     Indication: SLEEP DISORDER
     Route: 048
     Dates: end: 20180211
  2. RAMIPRIL. [Suspect]
     Active Substance: RAMIPRIL
     Indication: DRUG ADMINISTRATION ERROR
     Dosage: 2.5MG UNKNOWN
     Route: 048
     Dates: start: 20180212, end: 20180212
  3. LOXEN (NICARDIPINE HYDROCHLORIDE) [Suspect]
     Active Substance: NICARDIPINE HYDROCHLORIDE
     Indication: DRUG ADMINISTRATION ERROR
     Dosage: 50.0MG UNKNOWN
     Route: 048
     Dates: start: 20180212, end: 20180212
  4. BISOCE [Suspect]
     Active Substance: BISOPROLOL
     Indication: MYOCARDIAL ISCHAEMIA
  5. DIFFU K [Suspect]
     Active Substance: POTASSIUM CHLORIDE
     Indication: HYPOKALAEMIA
     Dosage: 1800MG, UNKNOWN (+600 MG LE 12/02/2018)
     Route: 048
     Dates: start: 20180206, end: 20180212
  6. NOVORAPID [Suspect]
     Active Substance: INSULIN ASPART
     Indication: DIABETES MELLITUS
     Route: 058
     Dates: start: 20180206
  7. JANUVIA [Suspect]
     Active Substance: SITAGLIPTIN PHOSPHATE
     Indication: TYPE 2 DIABETES MELLITUS
     Route: 048
     Dates: start: 20180208
  8. RAMIPRIL. [Suspect]
     Active Substance: RAMIPRIL
     Indication: DRUG ADMINISTRATION ERROR
     Dosage: 2.5 MG, UNKNOWN (MYLAN)2.5MG UNKNOWN
     Route: 048
     Dates: start: 20180212, end: 20180212
  9. KARDEGIC [Suspect]
     Active Substance: ASPIRIN DL-LYSINE
     Indication: MYOCARDIAL ISCHAEMIA
     Dosage: 75.0MG UNKNOWN
     Route: 048
  10. ATORVASTATIN [Concomitant]
     Active Substance: ATORVASTATIN
     Indication: DYSLIPIDAEMIA
     Dosage: 20.0MG UNKNOWN
     Route: 048
  11. ENTRESTO [Concomitant]
     Active Substance: SACUBITRIL\VALSARTAN
     Indication: CARDIAC FAILURE
     Route: 048
     Dates: end: 20180206
  12. METFORMIN [Concomitant]
     Active Substance: METFORMIN HYDROCHLORIDE
     Indication: TYPE 2 DIABETES MELLITUS
     Dosage: 500.0MG UNKNOWN
     Route: 048
  13. ATENOLOL. [Suspect]
     Active Substance: ATENOLOL
     Indication: DRUG ADMINISTRATION ERROR
     Dosage: 7.5MG, UNKNOWN ARROW UNKNOWN
     Route: 048
     Dates: start: 20180212, end: 20180212
  14. ATENOLOL. [Suspect]
     Active Substance: ATENOLOL
     Indication: DRUG ADMINISTRATION ERROR
     Route: 048
     Dates: start: 20180212, end: 20180212
  15. FUROSEMIDE. [Suspect]
     Active Substance: FUROSEMIDE
     Indication: CARDIAC FAILURE
     Route: 048
     Dates: start: 20180209, end: 20180216
  16. LYRICA [Suspect]
     Active Substance: PREGABALIN
     Indication: DRUG ADMINISTRATION ERROR
     Dosage: 25.0MG UNKNOWN
     Route: 048
     Dates: start: 20180212, end: 20180212
  17. ALLOPURINOL. [Concomitant]
     Active Substance: ALLOPURINOL
     Indication: PRODUCT USED FOR UNKNOWN INDICATION
     Dosage: 100.0MG UNKNOWN
     Route: 048
  18. OXYBUTYNIN HYDROCHLORIDE [Suspect]
     Active Substance: OXYBUTYNIN CHLORIDE
     Indication: DRUG ADMINISTRATION ERROR
     Dosage: 5.0MG UNKNOWN
     Route: 048
     Dates: start: 20180212, end: 20180212

REACTIONS (4)
  - Confusional state [Recovered/Resolved]
  - Cardiac output decreased [Not Recovered/Not Resolved]
  - Cardiovascular insufficiency [Not Recovered/Not Resolved]
  - Cardiac failure [Not Recovered/Not Resolved]

NARRATIVE: CASE EVENT DATE: 20180212
